FAERS Safety Report 11788746 (Version 2)
Quarter: 2016Q1

REPORT INFORMATION
  Report Type: Spontaneous
  Country: US (occurrence: US)
  Receive Date: 20151201
  Receipt Date: 20160210
  Transmission Date: 20160525
  Serious: Yes (Death, Hospitalization)
  Sender: FDA-Public Use
  Company Number: US-CIPLA LTD.-2015US09026

PATIENT

DRUGS (3)
  1. BEVACIZUMAB [Suspect]
     Active Substance: BEVACIZUMAB
     Indication: TRANSITIONAL CELL CARCINOMA
     Dosage: 15 MG/KG IV ON DAY 1, OF 21-DAY CYCLES
     Route: 065
  2. GEMCITABINE [Suspect]
     Active Substance: GEMCITABINE\GEMCITABINE HYDROCHLORIDE
     Indication: TRANSITIONAL CELL CARCINOMA
     Dosage: 1000 MG/M2 IV ON DAYS 1 AND 8, OF 21-DAY CYCLES
     Route: 042
  3. CISPLATIN. [Suspect]
     Active Substance: CISPLATIN
     Indication: TRANSITIONAL CELL CARCINOMA
     Dosage: 70 MG/M2 IV ON DAY 1, OF 21-DAY CYCLES
     Route: 042

REACTIONS (25)
  - Cardiogenic shock [Fatal]
  - Dizziness [Unknown]
  - Ventricular hypokinesia [Unknown]
  - Multiple organ dysfunction syndrome [Fatal]
  - Hypoperfusion [Fatal]
  - Thrombocytopenia [Unknown]
  - Conduction disorder [Unknown]
  - Renal impairment [Unknown]
  - Diarrhoea [Unknown]
  - Hypoxia [Unknown]
  - Presyncope [Fatal]
  - Angiopathy [Fatal]
  - Pallor [Unknown]
  - Metabolic acidosis [Unknown]
  - Abdominal pain upper [Unknown]
  - Nausea [Unknown]
  - Chest pain [Unknown]
  - Tachypnoea [Unknown]
  - Ejection fraction decreased [Unknown]
  - Hypotension [Unknown]
  - Electrocardiogram ST segment elevation [Unknown]
  - Cardiomegaly [Fatal]
  - Tachycardia [Unknown]
  - Troponin I increased [Unknown]
  - Transaminases increased [Unknown]
